FAERS Safety Report 24946899 (Version 2)
Quarter: 2025Q1

REPORT INFORMATION
  Report Type: Report from Study
  Country: US (occurrence: US)
  Receive Date: 20250210
  Receipt Date: 20250212
  Transmission Date: 20250409
  Serious: Yes (Hospitalization)
  Sender: NOVARTIS
  Company Number: US-002147023-NVSC2025US021488

PATIENT
  Sex: Male

DRUGS (1)
  1. PROMACTA [Suspect]
     Active Substance: ELTROMBOPAG OLAMINE
     Indication: Product used for unknown indication
     Dosage: 50 MG, QD
     Route: 048

REACTIONS (4)
  - Platelet count decreased [Unknown]
  - Asthenia [Unknown]
  - Cerebrovascular accident [Unknown]
  - Condition aggravated [Unknown]
